FAERS Safety Report 9940502 (Version 3)
Quarter: 2014Q2

REPORT INFORMATION
  Report Type: Report from Study
  Country: FR (occurrence: FR)
  Receive Date: 20140303
  Receipt Date: 20140404
  Transmission Date: 20141212
  Serious: Yes (Hospitalization, Other)
  Sender: FDA-Public Use
  Company Number: FR-SA-2014SA022257

PATIENT
  Age: 50 Year
  Sex: Male
  Weight: 105 kg

DRUGS (3)
  1. TERIFLUNOMIDE [Suspect]
     Indication: MULTIPLE SCLEROSIS RELAPSE
     Dosage: DOSE:1 UNIT(S)
     Route: 048
     Dates: start: 20080207
  2. VOLTAREN [Concomitant]
     Indication: PAIN
     Route: 003
     Dates: start: 201302
  3. DAFALGAN [Concomitant]
     Indication: PAIN
     Dosage: DOSE:1 UNIT(S)
     Route: 048
     Dates: start: 20130329

REACTIONS (1)
  - Renal mass [Recovered/Resolved]
